FAERS Safety Report 6476781-2 (Version None)
Quarter: 2009Q4

REPORT INFORMATION
  Report Type: 
  Country: None (occurrence: None)
  Receive Date: 20091207
  Receipt Date: 20091203
  Transmission Date: 20100525
  Serious: Yes (Death)
  Sender: FDA-Public Use
  Company Number: PHHY2009CA43938

PATIENT
  Sex: Female

DRUGS (1)
  1. EXJADE [Suspect]
     Indication: MULTIPLE MYELOMA
     Dosage: 250 MG ONCE DAILY
     Route: 048
     Dates: start: 20090915

REACTIONS (8)
  - ABDOMINAL DISCOMFORT [None]
  - CHEST PAIN [None]
  - DEATH [None]
  - DIARRHOEA [None]
  - DIZZINESS [None]
  - DYSSTASIA [None]
  - GINGIVAL PAIN [None]
  - MUSCLE SPASMS [None]
